FAERS Safety Report 17699361 (Version 1)
Quarter: 2020Q2

REPORT INFORMATION
  Report Type: Spontaneous
  Country: IT (occurrence: IT)
  Receive Date: 20200423
  Receipt Date: 20200423
  Transmission Date: 20200714
  Serious: Yes (Hospitalization)
  Sender: FDA-Public Use
  Company Number: IT-JUBILANT CADISTA PHARMACEUTICALS-2020JUB00138

PATIENT
  Age: 44 Year
  Sex: Female
  Weight: 80 kg

DRUGS (8)
  1. FUROSEMIDE. [Suspect]
     Active Substance: FUROSEMIDE
     Dosage: 25 MG, LAST TAKEN 3 DAYS BEFORE HOSPITAL ADMISSION
     Route: 065
  2. ATORVASTATIN [Concomitant]
     Active Substance: ATORVASTATIN
     Dosage: 10 MG
     Route: 065
  3. FLUVOXAMINE [Suspect]
     Active Substance: FLUVOXAMINE
     Dosage: 250 MG 1X/DAY
     Route: 065
  4. CLOTIAPINE [Concomitant]
     Active Substance: CLOTHIAPINE
     Dosage: 60 MG
     Route: 065
  5. LAXATIVE (SENNOSIDES A AND B) [Suspect]
     Active Substance: SENNOSIDES A AND B
     Route: 065
  6. LEVOTHYROXINE. [Concomitant]
     Active Substance: LEVOTHYROXINE
     Dosage: 25 ?G
     Route: 065
  7. FLUVOXAMINE [Suspect]
     Active Substance: FLUVOXAMINE
     Indication: DYSMORPHISM
     Dosage: 100 MG, 1X/DAY
     Route: 065
  8. OXCARBAZEPINE. [Suspect]
     Active Substance: OXCARBAZEPINE
     Dosage: 1200 MG
     Route: 065

REACTIONS (1)
  - Inappropriate antidiuretic hormone secretion [Recovered/Resolved]
